FAERS Safety Report 20254616 (Version 1)
Quarter: 2021Q4

REPORT INFORMATION
  Report Type: Spontaneous
  Country: US (occurrence: US)
  Receive Date: 20211230
  Receipt Date: 20211230
  Transmission Date: 20220303
  Serious: Yes (Hospitalization, Other)
  Sender: FDA-Public Use
  Company Number: US-Accord-248432

PATIENT
  Age: 22 Year
  Sex: Female

DRUGS (1)
  1. ATORVASTATIN [Suspect]
     Active Substance: ATORVASTATIN
     Indication: Weight decreased

REACTIONS (3)
  - Thrombocytopenia [Recovered/Resolved]
  - Self-medication [Unknown]
  - Off label use [Unknown]
